FAERS Safety Report 7596968-5 (Version None)
Quarter: 2011Q3

REPORT INFORMATION
  Report Type: 
  Country: None (occurrence: None)
  Receive Date: 20110708
  Receipt Date: 20110704
  Transmission Date: 20111222
  Serious: Yes (Other)
  Sender: FDA-Public Use
  Company Number: US-ROXANE LABORATORIES, INC.-2011-RO-00939RO

PATIENT
  Age: 86 Year
  Sex: Male

DRUGS (3)
  1. CYCLOPHOSPHAMIDE [Suspect]
     Indication: WEGENER'S GRANULOMATOSIS
     Dates: start: 20081001, end: 20090201
  2. PREDNISONE [Suspect]
     Indication: WEGENER'S GRANULOMATOSIS
     Dosage: 60 MG
     Dates: start: 20080701, end: 20081001
  3. PREDNISONE [Suspect]
     Dosage: 15 MG
     Dates: start: 20081001, end: 20090601

REACTIONS (1)
  - LEUKOPENIA [None]
